FAERS Safety Report 5304907-2 (Version None)
Quarter: 2007Q2

REPORT INFORMATION
  Report Type: 
  Country: None (occurrence: None)
  Receive Date: 20070416
  Receipt Date: 20070410
  Transmission Date: 20071010
  Serious: Yes (Hospitalization)
  Sender: FDA-Public Use
  Company Number: 2007SP004566

PATIENT
  Age: 39 Year
  Sex: Male

DRUGS (2)
  1. PEG-INTRON [Suspect]
     Indication: HEPATITIS C
     Dates: start: 20061031, end: 20070306
  2. RIBAVIRIN [Suspect]
     Indication: HEPATITIS C
     Dates: start: 20061031, end: 20070306

REACTIONS (6)
  - BRONCHITIS [None]
  - DEHYDRATION [None]
  - GASTROENTERITIS VIRAL [None]
  - HAEMOGLOBIN DECREASED [None]
  - INFECTION [None]
  - INFLUENZA [None]
